FAERS Safety Report 6369134-9 (Version None)
Quarter: 2009Q3

REPORT INFORMATION
  Report Type: 
  Country: None (occurrence: None)
  Receive Date: 20090917
  Receipt Date: 20090917
  Transmission Date: 20100115
  Serious: Yes (Other)
  Sender: FDA-Public Use
  Company Number: None

PATIENT
  Age: 28 Year
  Sex: Female
  Weight: 99.7913 kg

DRUGS (1)
  1. CYMBALTA [Suspect]
     Indication: ANXIETY
     Dosage: 90MG DAILY PO
     Route: 048
     Dates: start: 20020110, end: 20090801

REACTIONS (10)
  - DIZZINESS [None]
  - DRUG WITHDRAWAL SYNDROME [None]
  - EDUCATIONAL PROBLEM [None]
  - HEADACHE [None]
  - IRRITABILITY [None]
  - MALAISE [None]
  - NAUSEA [None]
  - PALPITATIONS [None]
  - QUALITY OF LIFE DECREASED [None]
  - VOMITING [None]
